FAERS Safety Report 8177365-0 (Version None)
Quarter: 2012Q1

REPORT INFORMATION
  Report Type: 
  Country: None (occurrence: None)
  Receive Date: 20120301
  Receipt Date: 20120223
  Transmission Date: 20120608
  Serious: Yes (Other)
  Sender: FDA-Public Use
  Company Number: KR-ROCHE-1042967

PATIENT
  Age: 37 Year
  Sex: Female

DRUGS (1)
  1. CLONAZEPAM [Suspect]
     Indication: CHOREA
     Dosage: 0.5 TO 1 MG DAILY SINCE 20 YEARS
     Route: 048

REACTIONS (1)
  - CATARACT [None]
